FAERS Safety Report 12639901 (Version 1)
Quarter: 2016Q3

REPORT INFORMATION
  Report Type: Spontaneous
  Country: US (occurrence: None)
  Receive Date: 20160809
  Receipt Date: 20160809
  Transmission Date: 20161109
  Serious: Yes (Death)
  Sender: FDA-Public Use
  Company Number: None

PATIENT
  Age: 51 Year
  Sex: Female
  Weight: 36.9 kg

DRUGS (1)
  1. WARFARIN [Suspect]
     Active Substance: WARFARIN

REACTIONS (5)
  - Subdural haematoma [None]
  - Seizure [None]
  - International normalised ratio increased [None]
  - Headache [None]
  - Brain midline shift [None]

NARRATIVE: CASE EVENT DATE: 20150730
